FAERS Safety Report 12556032 (Version 1)
Quarter: 2016Q3

REPORT INFORMATION
  Report Type: Spontaneous
  Country: US (occurrence: None)
  Receive Date: 20160713
  Receipt Date: 20160713
  Transmission Date: 20161109
  Serious: Yes (Disabling, Other)
  Sender: FDA-Public Use
  Company Number: None

PATIENT
  Age: 13 Year
  Sex: Female
  Weight: 45.36 kg

DRUGS (1)
  1. EQUATE SUN SCREEN WALLMART STORES [Suspect]
     Active Substance: HOMOSALATE\OCTINOXATE\OCTISALATE\OXYBENZONE\TITANIUM DIOXIDE
     Indication: PROPHYLAXIS AGAINST SOLAR RADIATION
     Dosage: APPLIED TO A SURFACE, USUALLY THE SKIN
     Dates: start: 20160528, end: 20160609

REACTIONS (1)
  - Rash [None]

NARRATIVE: CASE EVENT DATE: 20160608
